FAERS Safety Report 6348553-0 (Version None)
Quarter: 2009Q3

REPORT INFORMATION
  Report Type: 
  Country: None (occurrence: None)
  Receive Date: 20090911
  Receipt Date: 20090902
  Transmission Date: 20100115
  Serious: Yes (Other)
  Sender: FDA-Public Use
  Company Number: GB-JNJFOC-20090900877

PATIENT
  Age: 30 Year
  Sex: Female
  Weight: 70 kg

DRUGS (2)
  1. CILEST [Suspect]
     Indication: CONTRACEPTION
     Route: 048
     Dates: start: 20081101, end: 20090101
  2. DESOGESTREL AND ETHINYL ESTRADIOL [Suspect]
     Indication: CONTRACEPTION
     Route: 048
     Dates: start: 20090301, end: 20090601

REACTIONS (4)
  - ERYTHEMA NODOSUM [None]
  - FEELING HOT [None]
  - PRURITUS [None]
  - RASH GENERALISED [None]
